FAERS Safety Report 14566047 (Version 1)
Quarter: 2018Q1

REPORT INFORMATION
  Report Type: Spontaneous
  Country: US (occurrence: US)
  Receive Date: 20180222
  Receipt Date: 20180222
  Transmission Date: 20180509
  Serious: Yes (Death)
  Sender: FDA-Public Use
  Company Number: None

PATIENT
  Age: 83 Year
  Sex: Female

DRUGS (13)
  1. LIOTHYRONINE [Concomitant]
     Active Substance: LIOTHYRONINE
  2. DOK [Concomitant]
     Active Substance: DOCUSATE SODIUM
  3. BUDESONIDE. [Concomitant]
     Active Substance: BUDESONIDE
  4. MORPHINE [Concomitant]
     Active Substance: MORPHINE
  5. IRBESARTAN. [Concomitant]
     Active Substance: IRBESARTAN
  6. LEVALBUTEROL. [Concomitant]
     Active Substance: LEVALBUTEROL
  7. FUROSEMIDE. [Concomitant]
     Active Substance: FUROSEMIDE
  8. LEVOTHYROXINE. [Concomitant]
     Active Substance: LEVOTHYROXINE
  9. TOBRAMYCIN 300 MG PER 5 ML AKORN [Suspect]
     Active Substance: TOBRAMYCIN
     Indication: BRONCHIECTASIS
     Route: 055
     Dates: start: 20170826, end: 20180117
  10. TOBRAMYCIN 300 MG PER 5 ML AKORN [Suspect]
     Active Substance: TOBRAMYCIN
     Indication: PNEUMONIA PSEUDOMONAL
     Route: 055
     Dates: start: 20170826, end: 20180117
  11. HYDROCO/APAP [Concomitant]
     Active Substance: ACETAMINOPHEN\HYDROCODONE
  12. BROVANA [Concomitant]
     Active Substance: ARFORMOTEROL TARTRATE
  13. MELOXICAM. [Concomitant]
     Active Substance: MELOXICAM

REACTIONS (1)
  - Death [None]

NARRATIVE: CASE EVENT DATE: 20180117
